FAERS Safety Report 5778578-5 (Version None)
Quarter: 2008Q2

REPORT INFORMATION
  Report Type: 
  Country: None (occurrence: None)
  Receive Date: 20080619
  Receipt Date: 20080613
  Transmission Date: 20081010
  Serious: Yes (Other)
  Sender: FDA-Public Use
  Company Number: FR-ASTRAZENECA-2008CG00941

PATIENT
  Age: 60 Year
  Sex: Male

DRUGS (5)
  1. CRESTOR [Suspect]
     Indication: HYPERCHOLESTEROLAEMIA
     Route: 048
     Dates: start: 20070601
  2. CRESTOR [Suspect]
     Route: 048
     Dates: end: 20080301
  3. ASPIRIN [Concomitant]
  4. MONO-TILDIEM [Concomitant]
  5. CORVASAL [Concomitant]

REACTIONS (2)
  - MYALGIA [None]
  - TENDON RUPTURE [None]
